FAERS Safety Report 4739812-3 (Version None)
Quarter: 2005Q3

REPORT INFORMATION
  Report Type: 
  Country: None (occurrence: None)
  Receive Date: 20050810
  Receipt Date: 20050516
  Transmission Date: 20060218
  Serious: No
  Sender: FDA-Public Use
  Company Number: US-GLAXOSMITHKLINE-A0558792A

PATIENT
  Age: 42 Year
  Sex: Female

DRUGS (4)
  1. PAXIL [Suspect]
     Route: 048
     Dates: start: 20050401
  2. VALIUM [Concomitant]
  3. TRAZODONE [Concomitant]
  4. TOPROL-XL [Concomitant]

REACTIONS (5)
  - ANGER [None]
  - HEADACHE [None]
  - NAUSEA [None]
  - VOMITING [None]
  - WEIGHT DECREASED [None]
